FAERS Safety Report 12638321 (Version 1)
Quarter: 2016Q3

REPORT INFORMATION
  Report Type: Report from Study
  Country: BR (occurrence: BR)
  Receive Date: 20160809
  Receipt Date: 20160809
  Transmission Date: 20161109
  Serious: Yes (Other)
  Sender: FDA-Public Use
  Company Number: BR-ABBVIE-16K-020-1669468-00

PATIENT
  Age: 51 Year
  Sex: Female
  Weight: 80 kg

DRUGS (6)
  1. OVESTRION [Concomitant]
     Active Substance: ESTRIOL
     Indication: MENOPAUSE
     Route: 061
     Dates: start: 201602
  2. HUMIRA [Suspect]
     Active Substance: ADALIMUMAB
     Indication: ANKYLOSING SPONDYLITIS
     Route: 058
     Dates: start: 20150722
  3. RIVOTRIL [Concomitant]
     Active Substance: CLONAZEPAM
     Indication: FIBROMYALGIA
     Route: 048
     Dates: start: 2013
  4. ESOMEPRAZOLE [Concomitant]
     Active Substance: ESOMEPRAZOLE
     Indication: GASTRIC DISORDER
     Route: 048
     Dates: start: 201502
  5. ESTREVA [Concomitant]
     Active Substance: ESTRADIOL
     Indication: MENOPAUSE
     Route: 061
     Dates: start: 201605
  6. AMITRIPTYLINE [Concomitant]
     Active Substance: AMITRIPTYLINE
     Indication: PRODUCT USED FOR UNKNOWN INDICATION
     Route: 048
     Dates: start: 2014

REACTIONS (7)
  - Breast complication associated with device [Unknown]
  - Anxiety [Unknown]
  - Musculoskeletal stiffness [Unknown]
  - Breast enlargement [Recovering/Resolving]
  - Eyelid operation [Unknown]
  - Pain [Unknown]
  - Discomfort [Not Recovered/Not Resolved]

NARRATIVE: CASE EVENT DATE: 2015
